FAERS Safety Report 24050642 (Version 2)
Quarter: 2024Q3

REPORT INFORMATION
  Report Type: Spontaneous
  Country: US (occurrence: US)
  Receive Date: 20240704
  Receipt Date: 20240806
  Transmission Date: 20241016
  Serious: Yes (Other)
  Sender: CSL BEHRING
  Company Number: US-BEH-2024174802

PATIENT
  Age: 6 Year
  Sex: Male

DRUGS (7)
  1. IDELVION [Suspect]
     Active Substance: COAGULATION FACTOR IX RECOMBINANT HUMAN
     Indication: Factor IX deficiency
     Dosage: 1250 IU, QW
     Route: 042
     Dates: start: 201906
  2. IDELVION [Suspect]
     Active Substance: COAGULATION FACTOR IX RECOMBINANT HUMAN
     Indication: Factor IX deficiency
     Dosage: 1250 IU, QW
     Route: 042
     Dates: start: 201906
  3. IDELVION [Suspect]
     Active Substance: COAGULATION FACTOR IX RECOMBINANT HUMAN
     Indication: Haemorrhage
     Dosage: 1250 IU, PRN FOR BLEEDING
     Route: 042
     Dates: start: 201906
  4. IDELVION [Suspect]
     Active Substance: COAGULATION FACTOR IX RECOMBINANT HUMAN
     Indication: Haemorrhage
     Dosage: 1250 IU, PRN FOR BLEEDING
     Route: 042
     Dates: start: 201906
  5. IDELVION [Suspect]
     Active Substance: COAGULATION FACTOR IX RECOMBINANT HUMAN
     Dosage: 1 PROPHY DOSE AND 1 AS NEEDED DOSE
     Route: 065
     Dates: start: 20240616
  6. IDELVION [Suspect]
     Active Substance: COAGULATION FACTOR IX RECOMBINANT HUMAN
     Dosage: 1 PROPHY DOSE AND 1 AS NEEDED DOSE
     Route: 065
     Dates: start: 20240616
  7. SODIUM CHLORIDE [Concomitant]
     Active Substance: SODIUM CHLORIDE

REACTIONS (3)
  - Haemorrhage [Recovered/Resolved]
  - Limb injury [Unknown]
  - Vomiting [Unknown]

NARRATIVE: CASE EVENT DATE: 20240616
